FAERS Safety Report 8308470-3 (Version None)
Quarter: 2012Q2

REPORT INFORMATION
  Report Type: 
  Country: None (occurrence: None)
  Receive Date: 20120424
  Receipt Date: 20120413
  Transmission Date: 20120825
  Serious: Yes (Hospitalization)
  Sender: FDA-Public Use
  Company Number: US-JNJFOC-20120409035

PATIENT
  Age: 61 Year
  Sex: Female
  Weight: 62.58 kg

DRUGS (4)
  1. NICOTINE [Suspect]
     Indication: SMOKING CESSATION THERAPY
     Route: 062
     Dates: start: 20120315, end: 20120301
  2. SYNTHROID [Concomitant]
     Route: 065
  3. NICOTINE [Suspect]
     Route: 062
  4. NICOTROL [Suspect]
     Indication: SMOKING CESSATION THERAPY
     Route: 055
     Dates: start: 20120314

REACTIONS (7)
  - FATIGUE [None]
  - JOINT SWELLING [None]
  - HEART RATE INCREASED [None]
  - SOMNOLENCE [None]
  - BLISTER [None]
  - PAIN IN EXTREMITY [None]
  - DYSPNOEA [None]
